FAERS Safety Report 15561068 (Version 1)
Quarter: 2018Q4

REPORT INFORMATION
  Report Type: Spontaneous
  Country: US (occurrence: US)
  Receive Date: 20181024
  Receipt Date: 20181024
  Transmission Date: 20190205
  Serious: Yes (Other)
  Sender: FDA-Public Use
  Company Number: None

PATIENT
  Age: 36 Year
  Sex: Female

DRUGS (2)
  1. HYDROXYPROGESTERONE 250MG/ML SDV [Suspect]
     Active Substance: HYDROXYPROGESTERONE
     Indication: PREMATURE LABOUR
     Dosage: ?          QUANTITY:1 INJ;?
     Route: 030
     Dates: start: 20180723, end: 20181022
  2. HYDROXYPROGESTERONE 250MG/ML SDV [Suspect]
     Active Substance: HYDROXYPROGESTERONE
     Indication: PROPHYLAXIS
     Dosage: ?          QUANTITY:1 INJ;?
     Route: 030
     Dates: start: 20180723, end: 20181022

REACTIONS (4)
  - Product substitution issue [None]
  - Refusal of treatment by patient [None]
  - Injection site pruritus [None]
  - Injection site swelling [None]

NARRATIVE: CASE EVENT DATE: 20181022
